FAERS Safety Report 13297203 (Version 1)
Quarter: 2017Q1

REPORT INFORMATION
  Report Type: Spontaneous
  Country: US (occurrence: US)
  Receive Date: 20170303
  Receipt Date: 20170303
  Transmission Date: 20170428
  Serious: Yes (Disabling, Other)
  Sender: FDA-Public Use
  Company Number: None

PATIENT
  Age: 57 Year
  Sex: Female

DRUGS (1)
  1. PREDNISOLONE ACETATE 1% [Suspect]
     Active Substance: PREDNISOLONE ACETATE
     Indication: CATARACT OPERATION
     Route: 061
     Dates: start: 20170214, end: 20170224

REACTIONS (4)
  - Corneal disorder [None]
  - Corneal oedema [None]
  - Eye inflammation [None]
  - Toxicity to various agents [None]

NARRATIVE: CASE EVENT DATE: 20170224
